FAERS Safety Report 8486768-6 (Version None)
Quarter: 2012Q3

REPORT INFORMATION
  Report Type: 
  Country: None (occurrence: None)
  Receive Date: 20120704
  Receipt Date: 20120621
  Transmission Date: 20120928
  Serious: Yes (Hospitalization)
  Sender: FDA-Public Use
  Company Number: FR-BIOGENIDEC-2012BI022284

PATIENT
  Age: 31 Year
  Sex: Female

DRUGS (3)
  1. EFFEXOR [Concomitant]
     Dates: start: 20120501
  2. EFFEXOR [Concomitant]
     Indication: DEPRESSION
     Dates: start: 20110101, end: 20120501
  3. AVONEX [Suspect]
     Indication: MULTIPLE SCLEROSIS
     Route: 030
     Dates: start: 20080101, end: 20120518

REACTIONS (1)
  - THROMBOCYTOPENIC PURPURA [None]
